FAERS Safety Report 4716402-X (Version None)
Quarter: 2005Q3

REPORT INFORMATION
  Report Type: 
  Country: None (occurrence: None)
  Receive Date: 20050719
  Receipt Date: 19981109
  Transmission Date: 20060218
  Serious: Yes (Congenital Anomaly)
  Sender: FDA-Public Use
  Company Number: US-BOEHRINGER INGELHEIM PHARMACEUTICALS, INC.-1998-BP-01813

PATIENT
  Sex: Female
  Weight: 3.43 kg

DRUGS (7)
  1. VIRAMUNE [Suspect]
     Indication: ACQUIRED IMMUNODEFICIENCY SYNDROME
     Route: 048
     Dates: start: 19970505, end: 19970723
  2. DIDANOSINE (MATERNAL) [Suspect]
     Indication: HIV INFECTION
     Route: 048
     Dates: start: 19970505, end: 19970923
  3. LAMIVUDINE (MATERNAL) [Suspect]
     Indication: HIV INFECTION
     Route: 048
     Dates: start: 19970923, end: 19971124
  4. COMBIVIR [Suspect]
     Indication: HIV INFECTION
     Route: 048
     Dates: start: 19971125, end: 19980315
  5. VIRACEPT [Suspect]
     Indication: HIV INFECTION
     Route: 048
     Dates: start: 19970505, end: 19970923
  6. ZIDOVUDINE [Suspect]
     Indication: HIV INFECTION
     Route: 048
     Dates: start: 19970923, end: 19971124
  7. ZIDOVUDINE [Suspect]
     Route: 042
     Dates: start: 19980315, end: 19980315

REACTIONS (3)
  - CONGENITAL ANOMALY [None]
  - DRUG EXPOSURE DURING PREGNANCY [None]
  - SITUS INVERSUS [None]
